FAERS Safety Report 7598634-9 (Version None)
Quarter: 2011Q3

REPORT INFORMATION
  Report Type: 
  Country: None (occurrence: None)
  Receive Date: 20110711
  Receipt Date: 20110629
  Transmission Date: 20111222
  Serious: Yes (Other)
  Sender: FDA-Public Use
  Company Number: JP-BRISTOL-MYERS SQUIBB COMPANY-15860372

PATIENT
  Age: 5 Decade
  Sex: Female

DRUGS (4)
  1. FLUNITRAZEPAM [Concomitant]
  2. PROMETHAZINE HCL [Concomitant]
  3. ABILIFY [Suspect]
     Indication: SCHIZOPHRENIA
     Dosage: ALSO 24 MG DAILY
     Route: 048
  4. ABILIFY [Suspect]
     Indication: SCHIZOPHRENIA
     Route: 048

REACTIONS (4)
  - PERSECUTORY DELUSION [None]
  - HALLUCINATION, AUDITORY [None]
  - INSOMNIA [None]
  - ABNORMAL BEHAVIOUR [None]
